FAERS Safety Report 18565636 (Version 2)
Quarter: 2022Q1

REPORT INFORMATION
  Report Type: Spontaneous
  Country: ES (occurrence: ES)
  Receive Date: 20201201
  Receipt Date: 20220131
  Transmission Date: 20220424
  Serious: Yes (Death, Other)
  Sender: FDA-Public Use
  Company Number: ES-AMGEN-ESPSP2020194327

PATIENT

DRUGS (1)
  1. CINACALCET HYDROCHLORIDE [Suspect]
     Active Substance: CINACALCET HYDROCHLORIDE
     Indication: Hyperparathyroidism secondary
     Dosage: UNK
     Route: 065

REACTIONS (11)
  - Death [Fatal]
  - Hyperphosphataemia [Fatal]
  - Cardiovascular disorder [Fatal]
  - Chronic kidney disease [Unknown]
  - Disease progression [Unknown]
  - Albuminuria [Unknown]
  - Blood glucose decreased [Unknown]
  - Low density lipoprotein decreased [Unknown]
  - Blood glucose increased [Unknown]
  - High density lipoprotein decreased [Unknown]
  - Hypertension [Unknown]
